FAERS Safety Report 5005762-0 (Version None)
Quarter: 2006Q2

REPORT INFORMATION
  Report Type: 
  Country: None (occurrence: None)
  Receive Date: 20060518
  Receipt Date: 20060410
  Transmission Date: 20061013
  Serious: Yes (Other)
  Sender: FDA-Public Use
  Company Number: JP-BRISTOL-MYERS SQUIBB COMPANY-13345178

PATIENT
  Age: 88 Year
  Sex: Female

DRUGS (2)
  1. GATIFLOXACIN [Suspect]
     Indication: BACTERIAL INFECTION
     Route: 048
  2. FLOMOX [Suspect]
     Indication: BACTERIAL INFECTION
     Route: 048

REACTIONS (2)
  - HYPERGLYCAEMIA [None]
  - RENAL FAILURE [None]
